FAERS Safety Report 8065612-5 (Version None)
Quarter: 2012Q1

REPORT INFORMATION
  Report Type: 
  Country: None (occurrence: None)
  Receive Date: 20120117
  Receipt Date: 20120105
  Transmission Date: 20120608
  Serious: Yes (Other)
  Sender: FDA-Public Use
  Company Number: 1000026949

PATIENT
  Age: 69 Year
  Sex: Female

DRUGS (7)
  1. MEMANTINE HYDROCHLORIDE [Suspect]
     Indication: DEMENTIA ALZHEIMER'S TYPE
     Dosage: 20 MG (20 MG, 1 IN 1 D), ORAL
     Route: 048
     Dates: end: 20111125
  2. UNASYN [Concomitant]
  3. MEMANTINE HYDROCHLORIDE [Suspect]
     Indication: DEMENTIA ALZHEIMER'S TYPE
     Dosage: 5 MG (5 MG, 1 IN 1 D), ORAL
     Route: 048
  4. BENZALIN (NITRAZEPAM) (NITRAZEPAM) [Concomitant]
  5. DESYREL (TRAZODONE HYDROCHLORIDE) (TRAZODONE HYDROCHLORIDE) [Concomitant]
  6. ARICEPT [Suspect]
     Dosage: 5 MG (5 MG, 1 IN 1 D),
     Dates: end: 20111125
  7. ZOLPIDEM TARTRATE [Concomitant]

REACTIONS (12)
  - DELIRIUM [None]
  - PNEUMONIA ASPIRATION [None]
  - BLOOD CREATINE PHOSPHOKINASE INCREASED [None]
  - CONVULSION [None]
  - DIZZINESS [None]
  - DYSURIA [None]
  - HYPERREFLEXIA [None]
  - HYPERHIDROSIS [None]
  - ACTIVITIES OF DAILY LIVING IMPAIRED [None]
  - TREMOR [None]
  - TACHYCARDIA [None]
  - CHILLS [None]
